FAERS Safety Report 7553865-9 (Version None)
Quarter: 2011Q2

REPORT INFORMATION
  Report Type: 
  Country: None (occurrence: None)
  Receive Date: 20110617
  Receipt Date: 20110616
  Transmission Date: 20111010
  Serious: Yes (Other)
  Sender: FDA-Public Use
  Company Number: US-PFIZER INC-2011132491

PATIENT
  Sex: Female
  Weight: 103 kg

DRUGS (8)
  1. PREVACID [Concomitant]
     Indication: GASTROOESOPHAGEAL REFLUX DISEASE
     Dosage: 30 MG, DAILY
  2. REMERON [Concomitant]
     Indication: ANXIETY
     Dosage: 50 MG, DAILY
  3. CORTISONE [Concomitant]
     Indication: RASH
     Dosage: UNK, AS NEEDED
     Route: 061
  4. MIRALAX [Concomitant]
     Indication: CONSTIPATION
     Dosage: 7.5 MG, DAILY
  5. CELEBREX [Suspect]
     Indication: SCOLIOSIS
     Dosage: 100 MG DAILY
     Route: 048
     Dates: start: 20110515, end: 20110523
  6. TRAMADOL [Concomitant]
     Indication: PAIN
     Dosage: 650 MG, 4X/DAY
  7. SEROQUEL [Concomitant]
     Indication: ABNORMAL BEHAVIOUR
     Dosage: 25 MG, DAILY AT NIGHT
  8. TELMA [Concomitant]
     Indication: HYPERTENSION
     Dosage: 100 MG, DAILY

REACTIONS (1)
  - PEMPHIGOID [None]
